FAERS Safety Report 16017375 (Version 1)
Quarter: 2019Q1

REPORT INFORMATION
  Report Type: Spontaneous
  Country: US (occurrence: US)
  Receive Date: 20190228
  Receipt Date: 20190228
  Transmission Date: 20190418
  Serious: Yes (Other)
  Sender: FDA-Public Use
  Company Number: US-B.I. PHARMACEUTICALS,INC./RIDGEFIELD-2019-BI-008363

PATIENT
  Sex: Male

DRUGS (5)
  1. GABAPENTIN. [Concomitant]
     Active Substance: GABAPENTIN
     Route: 065
  2. MIRAPEX [Suspect]
     Active Substance: PRAMIPEXOLE DIHYDROCHLORIDE
     Indication: RESTLESS LEGS SYNDROME
     Route: 048
  3. MIRAPEX [Suspect]
     Active Substance: PRAMIPEXOLE DIHYDROCHLORIDE
     Route: 065
  4. GABAPENTIN. [Concomitant]
     Active Substance: GABAPENTIN
     Dosage: UNIT DOSE: 2-3 CAPSULES
     Route: 065
  5. GABAPENTIN. [Concomitant]
     Active Substance: GABAPENTIN
     Indication: CENTRAL PAIN SYNDROME
     Route: 065
     Dates: start: 201709

REACTIONS (11)
  - Hallucination [Unknown]
  - Cough [Unknown]
  - Somnolence [Not Recovered/Not Resolved]
  - Balance disorder [Recovered/Resolved]
  - Cerebrovascular accident [Unknown]
  - Fall [Unknown]
  - Dizziness [Recovered/Resolved]
  - Impaired reasoning [Unknown]
  - Migraine with aura [Unknown]
  - Eating disorder [Unknown]
  - Weight decreased [Unknown]
